FAERS Safety Report 8971636 (Version 1)
Quarter: 2012Q4

REPORT INFORMATION
  Report Type: Report from Study
  Country: US (occurrence: US)
  Receive Date: 20121217
  Receipt Date: 20121217
  Transmission Date: 20130627
  Serious: Yes (Other)
  Sender: FDA-Public Use
  Company Number: US-ROCHE-672382

PATIENT
  Age: 59 Year
  Sex: Male
  Weight: 104.3 kg

DRUGS (1)
  1. CAPECITABINE [Suspect]
     Indication: METASTATIC NEOPLASM
     Route: 048
     Dates: start: 20090504, end: 20091119

REACTIONS (1)
  - Neoplasm malignant [Unknown]
